FAERS Safety Report 5193734-5 (Version None)
Quarter: 2006Q4

REPORT INFORMATION
  Report Type: 
  Country: None (occurrence: None)
  Receive Date: 20061228
  Receipt Date: 20061222
  Transmission Date: 20070319
  Serious: Yes (Other)
  Sender: FDA-Public Use
  Company Number: US-GLAXOSMITHKLINE-A0632596A

PATIENT
  Age: 47 Year
  Sex: Male
  Weight: 144.1 kg

DRUGS (14)
  1. LAMICTAL [Suspect]
     Dosage: 100MG TWICE PER DAY
     Route: 048
  2. LOVENOX [Suspect]
  3. FOLIC ACID [Suspect]
  4. SYNTHROID [Suspect]
  5. PENTOXIFYLLINE [Suspect]
  6. FOSAMAX [Suspect]
  7. LEXAPRO [Suspect]
  8. NEXIUM [Suspect]
  9. GABAPENTIN [Suspect]
  10. FUROSEMIDE [Suspect]
  11. TRAZODONE HCL [Suspect]
  12. CALCIUM [Suspect]
  13. ASPIRIN [Suspect]
  14. VITAMIN D [Suspect]

REACTIONS (4)
  - ANTICONVULSANT DRUG LEVEL BELOW THERAPEUTIC [None]
  - CONVULSION [None]
  - DRUG INEFFECTIVE [None]
  - DRUG INTERACTION [None]
